FAERS Safety Report 5348894-X (Version None)
Quarter: 2007Q2

REPORT INFORMATION
  Report Type: 
  Country: None (occurrence: None)
  Receive Date: 20070607
  Receipt Date: 20070525
  Transmission Date: 20071010
  Serious: Yes (Hospitalization)
  Sender: FDA-Public Use
  Company Number: PHBS2007GB08667

PATIENT
  Age: 52 Year
  Sex: Female
  Weight: 70 kg

DRUGS (2)
  1. CLIMAGEST [Suspect]
     Indication: HORMONE REPLACEMENT THERAPY
     Dosage: 1 MG/D
     Route: 048
     Dates: start: 20060801, end: 20070501
  2. CALCIUM CHLORIDE [Concomitant]
     Route: 065
     Dates: start: 20040701

REACTIONS (1)
  - PULMONARY EMBOLISM [None]
